FAERS Safety Report 10092586 (Version 1)
Quarter: 2014Q2

REPORT INFORMATION
  Report Type: Spontaneous
  Country: US (occurrence: US)
  Receive Date: 20140421
  Receipt Date: 20140421
  Transmission Date: 20141212
  Serious: No
  Sender: FDA-Public Use
  Company Number: US-SANOFI-AVENTIS-2013SA041277

PATIENT
  Sex: Female

DRUGS (5)
  1. ALLEGRA [Suspect]
     Indication: RHINORRHOEA
     Route: 048
  2. LOSARTAN [Concomitant]
  3. ATORVASTATIN [Concomitant]
  4. CALCIUM [Concomitant]
  5. TYLENOL [Concomitant]

REACTIONS (3)
  - Malaise [Not Recovered/Not Resolved]
  - Feeling hot [Not Recovered/Not Resolved]
  - Nasopharyngitis [Not Recovered/Not Resolved]
